FAERS Safety Report 4930747-X (Version None)
Quarter: 2006Q1

REPORT INFORMATION
  Report Type: 
  Country: None (occurrence: None)
  Receive Date: 20060227
  Receipt Date: 20060214
  Transmission Date: 20060701
  Serious: Yes (Hospitalization)
  Sender: FDA-Public Use
  Company Number: 2006022059

PATIENT
  Age: 87 Year
  Sex: Female

DRUGS (3)
  1. DETROL LA [Suspect]
     Indication: ILL-DEFINED DISORDER
  2. ARICEPT [Concomitant]
  3. NAMENDA [Concomitant]

REACTIONS (5)
  - ABDOMINAL PAIN [None]
  - INTESTINAL ISCHAEMIA [None]
  - LETHARGY [None]
  - SEPSIS [None]
  - URINARY TRACT INFECTION [None]
